FAERS Safety Report 9065427 (Version 1)
Quarter: 2013Q1

REPORT INFORMATION
  Report Type: Spontaneous
  Country: BR (occurrence: BR)
  Receive Date: 20130214
  Receipt Date: 20130214
  Transmission Date: 20140127
  Serious: Yes (Hospitalization)
  Sender: FDA-Public Use
  Company Number: BR-ASTRAZENECA-2012SE27427

PATIENT
  Age: 57 Year
  Sex: Female
  Weight: 57.5 kg

DRUGS (3)
  1. ATACAND [Suspect]
     Indication: HYPERTENSION
     Route: 048
     Dates: start: 2011
  2. ATACAND COMB [Suspect]
     Indication: HYPERTENSION
     Dosage: 16 + 2.5 MG EVERY MORNING
     Route: 048
     Dates: start: 201203
  3. RIVOTRIL [Concomitant]
     Indication: MUSCLE RELAXANT THERAPY
     Dosage: PRN
     Route: 048

REACTIONS (5)
  - Blood pressure increased [Recovered/Resolved]
  - Blood pressure inadequately controlled [Unknown]
  - Drug ineffective [Unknown]
  - Intentional drug misuse [Unknown]
  - Intentional drug misuse [Not Recovered/Not Resolved]
